FAERS Safety Report 10681852 (Version 6)
Quarter: 2015Q3

REPORT INFORMATION
  Report Type: Spontaneous
  Country: JP (occurrence: JP)
  Receive Date: 20141230
  Receipt Date: 20150720
  Transmission Date: 20151125
  Serious: Yes (Death, Hospitalization, Other)
  Sender: FDA-Public Use
  Company Number: JP-ASTRAZENECA-2014SE98471

PATIENT
  Age: 15447 Day
  Sex: Female
  Weight: 65 kg

DRUGS (8)
  1. ARIMIDEX [Suspect]
     Active Substance: ANASTROZOLE
     Indication: BREAST CANCER
     Route: 048
     Dates: start: 20120411, end: 20141215
  2. RISPERDAL [Concomitant]
     Active Substance: RISPERIDONE
     Dosage: 3 MG ONCE DAILY (EVENING) OR TWICE DAILY (MORNING AND BEFORE BEDTIME)
     Dates: start: 20140605, end: 20141204
  3. ZOLADEX [Suspect]
     Active Substance: GOSERELIN ACETATE
     Indication: BREAST CANCER
     Route: 058
     Dates: start: 20120117, end: 20141215
  4. SEROQUEL [Suspect]
     Active Substance: QUETIAPINE FUMARATE
     Route: 048
     Dates: start: 20140411
  5. ZOMETA [Concomitant]
     Active Substance: ZOLEDRONIC ACID
     Indication: METASTASES TO BONE
     Dosage: NUMBER OF SEPARATE DOSAGES UNKNOWN
     Route: 042
     Dates: start: 20120106, end: 20120508
  6. MEILAX [Concomitant]
     Active Substance: ETHYL LOFLAZEPATE
     Dates: start: 20140605, end: 20141204
  7. NOLVADEX [Suspect]
     Active Substance: TAMOXIFEN CITRATE
     Indication: BREAST CANCER
     Route: 048
     Dates: start: 20120117, end: 20120410
  8. RANMARK [Concomitant]
     Active Substance: DENOSUMAB
     Indication: METASTASES TO BONE
     Route: 058
     Dates: start: 20120605, end: 20141215

REACTIONS (6)
  - Completed suicide [Fatal]
  - Malignant neoplasm progression [Unknown]
  - Multiple injuries [Fatal]
  - Intentional product misuse [Unknown]
  - Akathisia [Unknown]
  - Acute psychosis [Not Recovered/Not Resolved]

NARRATIVE: CASE EVENT DATE: 20140411
